FAERS Safety Report 8506258-1 (Version None)
Quarter: 2012Q3

REPORT INFORMATION
  Report Type: 
  Country: None (occurrence: None)
  Receive Date: 20120712
  Receipt Date: 20120704
  Transmission Date: 20120928
  Serious: Yes (Hospitalization)
  Sender: FDA-Public Use
  Company Number: JP-JNJFOC-20120703558

PATIENT
  Sex: Female
  Weight: 42 kg

DRUGS (10)
  1. PREDNISOLONE [Concomitant]
     Indication: RHEUMATOID ARTHRITIS
     Route: 048
  2. ISONIAZID [Concomitant]
     Indication: PROPHYLAXIS
     Route: 048
     Dates: start: 20111116, end: 20120111
  3. CELECOXIB [Concomitant]
     Indication: RHEUMATOID ARTHRITIS
     Route: 048
  4. ALLEGRA [Concomitant]
     Route: 048
  5. RECALBON [Concomitant]
     Route: 048
  6. SIMPONI [Suspect]
     Indication: RHEUMATOID ARTHRITIS
     Route: 058
     Dates: start: 20111116
  7. CALBLOCK [Concomitant]
     Route: 048
  8. OLMESARTAN MEDOXOMIL [Concomitant]
     Route: 048
  9. LANSOPRAZOLE [Concomitant]
     Route: 048
  10. LOXONIN [Concomitant]
     Indication: RHEUMATOID ARTHRITIS
     Route: 061
     Dates: end: 20120120

REACTIONS (2)
  - FOLLICULITIS [None]
  - LUNG INFECTION PSEUDOMONAL [None]
